FAERS Safety Report 5780294-0 (Version None)
Quarter: 2008Q2

REPORT INFORMATION
  Report Type: 
  Country: None (occurrence: None)
  Receive Date: 20080620
  Receipt Date: 20080610
  Transmission Date: 20081010
  Serious: Yes (Hospitalization, Other)
  Sender: FDA-Public Use
  Company Number: US-JNJFOC-20080503953

PATIENT
  Sex: Female
  Weight: 89.81 kg

DRUGS (2)
  1. REMICADE [Suspect]
     Route: 042
  2. REMICADE [Suspect]
     Indication: PSORIASIS
     Dosage: FIRST INFUSION
     Route: 042

REACTIONS (1)
  - COLITIS ISCHAEMIC [None]
